FAERS Safety Report 20157585 (Version 1)
Quarter: 2021Q4

REPORT INFORMATION
  Report Type: Spontaneous
  Country: US (occurrence: US)
  Receive Date: 20211207
  Receipt Date: 20211207
  Transmission Date: 20220303
  Serious: No
  Sender: FDA-Public Use
  Company Number: US-PFIZER INC-202101383616

PATIENT
  Age: 6 Year
  Sex: Female

DRUGS (1)
  1. CRIZOTINIB [Suspect]
     Active Substance: CRIZOTINIB
     Indication: Inflammatory myofibroblastic tumour
     Dosage: 280 MG/M2, 2X/DAY

REACTIONS (2)
  - Off label use [Unknown]
  - Dysphagia [Unknown]
